FAERS Safety Report 18162061 (Version 2)
Quarter: 2020Q3

REPORT INFORMATION
  Report Type: Spontaneous
  Country: AU (occurrence: AU)
  Receive Date: 20200818
  Receipt Date: 20200821
  Transmission Date: 20201103
  Serious: Yes (Other)
  Sender: FDA-Public Use
  Company Number: AU-MYLANLABS-2020M1071670

PATIENT
  Age: 22 Year
  Sex: Male

DRUGS (4)
  1. COLOXYL WITH SENNA [Concomitant]
     Active Substance: DOCUSATE SODIUM\SENNOSIDES A AND B
     Dosage: 2 NOCTE
  2. CLOZARIL [Suspect]
     Active Substance: CLOZAPINE
     Indication: SCHIZOPHRENIA
     Dosage: 550 MILLIGRAM NOCTE
     Route: 048
     Dates: start: 20180228
  3. PALIPERIDONE. [Concomitant]
     Active Substance: PALIPERIDONE
     Dosage: 100MG IMI EVERY 4 WEEKS
  4. ATROPINE. [Concomitant]
     Active Substance: ATROPINE
     Dosage: DROPS NOCTE SUBLINGUAL PRN
     Route: 060

REACTIONS (10)
  - Antipsychotic drug level decreased [Not Recovered/Not Resolved]
  - Low density lipoprotein increased [Recovered/Resolved]
  - Haematocrit decreased [Unknown]
  - Troponin T increased [Recovering/Resolving]
  - Eosinophil count increased [Unknown]
  - Lymphocyte count increased [Unknown]
  - Globulins decreased [Unknown]
  - Blood osmolarity increased [Unknown]
  - Blood urea increased [Unknown]
  - Blood cholesterol increased [Recovered/Resolved]

NARRATIVE: CASE EVENT DATE: 20180604
